FAERS Safety Report 10451399 (Version 6)
Quarter: 2015Q1

REPORT INFORMATION
  Report Type: Spontaneous
  Country: JP (occurrence: JP)
  Receive Date: 20140912
  Receipt Date: 20150210
  Transmission Date: 20150720
  Serious: Yes (Death, Hospitalization, Other)
  Sender: FDA-Public Use
  Company Number: JP-B.I. PHARMACEUTICALS,INC./RIDGEFIELD-2014-BI-34554NB

PATIENT
  Age: 74 Year
  Sex: Female
  Weight: 33.1 kg

DRUGS (27)
  1. TAGAMET [Concomitant]
     Active Substance: CIMETIDINE
     Indication: GASTRIC ULCER
     Dosage: 400 MG
     Route: 048
     Dates: start: 20140219, end: 20140609
  2. GILOTRIF [Suspect]
     Active Substance: AFATINIB
     Dosage: 30 MG
     Route: 048
     Dates: start: 20140715
  3. GILOTRIF [Suspect]
     Active Substance: AFATINIB
     Dosage: 20 MG
     Route: 048
     Dates: start: 20140909, end: 20141015
  4. ALEVIATIN [Suspect]
     Active Substance: PHENYTOIN SODIUM
     Dosage: 200 MG
     Route: 042
     Dates: start: 20141009, end: 20141015
  5. ALEVIATIN [Suspect]
     Active Substance: PHENYTOIN SODIUM
     Dosage: 125 MG
     Route: 042
     Dates: start: 20141023, end: 20141126
  6. ZINC OXIDE SIMPLE OINTMENT [Concomitant]
     Active Substance: ZINC OXIDE
     Indication: ECZEMA
     Dosage: 5 G
     Route: 065
     Dates: start: 20140913, end: 20141120
  7. ISODINE SUGAR [Concomitant]
     Indication: SKIN ULCER
     Dosage: 5 G
     Route: 065
     Dates: start: 20141001, end: 20141007
  8. LOPEMIN [Suspect]
     Active Substance: LOPERAMIDE HYDROCHLORIDE
     Dosage: 4 MG
     Route: 048
     Dates: start: 20140815
  9. OLMETEC [Concomitant]
     Active Substance: OLMESARTAN MEDOXOMIL
     Indication: HYPERTENSION
     Dosage: 10 MG
     Route: 048
     Dates: start: 20110524, end: 20140731
  10. TEGRETOL [Concomitant]
     Active Substance: CARBAMAZEPINE
     Indication: EPILEPSY
     Dosage: 400 MG
     Route: 048
     Dates: start: 20140424, end: 20140701
  11. HIRUDOID [Concomitant]
     Active Substance: GLYCOSAMINOGLYCANS
     Indication: DRY SKIN
     Dosage: 5 G
     Route: 065
     Dates: start: 20141006, end: 20141012
  12. FUCIDIN LEO [Concomitant]
     Active Substance: FUSIDATE SODIUM
     Indication: SKIN ULCER
     Dosage: 5 G
     Route: 065
     Dates: start: 20141015, end: 20141127
  13. REBAMIPIDE [Concomitant]
     Active Substance: REBAMIPIDE
     Indication: GASTRIC ULCER
     Dosage: 200 MG
     Route: 048
     Dates: start: 20110524, end: 20140609
  14. BFLUID [Concomitant]
     Active Substance: AMINO ACIDS\DEXTROSE\ELECTROLYTES NOS\VITAMINS
     Indication: DEHYDRATION
     Dosage: 1000 ML
     Route: 042
     Dates: start: 20140604, end: 20141127
  15. RINDERON V [Concomitant]
     Active Substance: BETAMETHASONE VALERATE
     Indication: DRY SKIN
     Dosage: 5 G
     Route: 065
     Dates: start: 20141006, end: 20141012
  16. GILOTRIF [Suspect]
     Active Substance: AFATINIB
     Dosage: 20 MG
     Route: 048
     Dates: start: 20140820, end: 20140831
  17. MAGMITT [Concomitant]
     Active Substance: MAGNESIUM OXIDE
     Indication: CONSTIPATION
     Dosage: 1500 MG
     Route: 048
     Dates: start: 20140501, end: 20140611
  18. ZOSYN [Concomitant]
     Active Substance: PIPERACILLIN SODIUM\TAZOBACTAM SODIUM
     Indication: PNEUMONIA
     Dosage: 4.5 MG
     Route: 042
     Dates: start: 20141015
  19. GILOTRIF [Suspect]
     Active Substance: AFATINIB
     Indication: LUNG ADENOCARCINOMA
     Dosage: 40 MG
     Route: 048
     Dates: start: 20140603, end: 20140616
  20. FLAGYL [Suspect]
     Active Substance: METRONIDAZOLE\METRONIDAZOLE HYDROCHLORIDE
     Indication: PSEUDOMEMBRANOUS COLITIS
     Dosage: 1500 MG
     Route: 048
     Dates: start: 20140621, end: 20140626
  21. CEFCAPENE PIVOXIL HYDROCHLORIDE HYDRATE [Concomitant]
     Active Substance: CEFCAPENE PIVOXIL HYDROCHLORIDE HYDRATE
     Indication: URINARY TRACT INFECTION
     Dosage: 300 MG
     Route: 048
     Dates: start: 20141014, end: 20141017
  22. LOPEMIN [Suspect]
     Active Substance: LOPERAMIDE HYDROCHLORIDE
     Indication: DIARRHOEA
     Dosage: 1 MG
     Route: 048
     Dates: start: 20140612, end: 20140627
  23. LOPEMIN [Suspect]
     Active Substance: LOPERAMIDE HYDROCHLORIDE
     Dosage: 4 MG
     Route: 048
     Dates: start: 20140820
  24. ALEVIATIN [Suspect]
     Active Substance: PHENYTOIN SODIUM
     Indication: EPILEPSY
     Dosage: 125 MG
     Route: 042
     Dates: start: 20140926
  25. PREDONINE [Concomitant]
     Active Substance: PREDNISOLONE\PREDNISOLONE ACETATE\PREDNISOLONE SODIUM SUCCINATE
     Indication: RASH
     Dosage: 2.5 MG
     Route: 048
     Dates: start: 20140219, end: 20140609
  26. POLAPREZINC OD [Concomitant]
     Indication: GASTRIC ULCER
     Dosage: 150 MG
     Route: 048
     Dates: start: 20140924, end: 20140930
  27. NIZORAL [Concomitant]
     Active Substance: KETOCONAZOLE
     Indication: TINEA INFECTION
     Dosage: 5 G
     Route: 065
     Dates: start: 20141106, end: 20141127

REACTIONS (12)
  - Neutrophil count decreased [Not Recovered/Not Resolved]
  - Epilepsy [Recovered/Resolved]
  - Skin ulcer [Not Recovered/Not Resolved]
  - Calculus bladder [Not Recovered/Not Resolved]
  - Diarrhoea [Not Recovered/Not Resolved]
  - Rash [Not Recovered/Not Resolved]
  - Eczema [Not Recovered/Not Resolved]
  - Malignant neoplasm progression [Fatal]
  - Nephrocalcinosis [Not Recovered/Not Resolved]
  - White blood cell count decreased [Not Recovered/Not Resolved]
  - Tinea infection [Not Recovered/Not Resolved]
  - Platelet count decreased [Not Recovered/Not Resolved]

NARRATIVE: CASE EVENT DATE: 20140715
